FAERS Safety Report 18497143 (Version 1)
Quarter: 2020Q4

REPORT INFORMATION
  Report Type: Other
  Country: FR (occurrence: FR)
  Receive Date: 20201112
  Receipt Date: 20201112
  Transmission Date: 20210114
  Serious: Yes (Death, Other)
  Sender: FDA-Public Use
  Company Number: FR-VALIDUS PHARMACEUTICALS LLC-FR-2020VAL000869

PATIENT

DRUGS (4)
  1. FUROSEMIDE. [Suspect]
     Active Substance: FUROSEMIDE
     Indication: CARDIAC FAILURE ACUTE
     Dosage: 40 MG, QD
     Route: 048
     Dates: start: 20180831, end: 20180906
  2. GENTAMICIN SULFATE. [Suspect]
     Active Substance: GENTAMICIN SULFATE
     Indication: ENDOCARDITIS
     Dosage: 280 MG, QD
     Route: 042
     Dates: end: 20180830
  3. OXACILLINE [Suspect]
     Active Substance: OXACILLIN SODIUM
     Indication: ENDOCARDITIS
     Dosage: 12 G, QD, 3 INJECTIONS
     Route: 042
     Dates: start: 20180824, end: 20180906
  4. OXACILLINE [Suspect]
     Active Substance: OXACILLIN SODIUM
     Dosage: DOSE REDUCED
     Route: 065

REACTIONS (1)
  - Acute kidney injury [Fatal]

NARRATIVE: CASE EVENT DATE: 20180828
